FAERS Safety Report 17146617 (Version 2)
Quarter: 2019Q4

REPORT INFORMATION
  Report Type: Report from Study
  Country: AR (occurrence: AR)
  Receive Date: 20191212
  Receipt Date: 20191212
  Transmission Date: 20200122
  Serious: Yes (Hospitalization)
  Sender: FDA-Public Use
  Company Number: NVSC2019AR050255

PATIENT
  Age: 46 Year
  Sex: Female
  Weight: 61 kg

DRUGS (9)
  1. MEPREDNISONE [Concomitant]
     Active Substance: MEPREDNISONE
     Dosage: 20 MG
     Route: 065
     Dates: start: 20191121
  2. TRAMETINIB [Suspect]
     Active Substance: TRAMETINIB
     Dosage: 1.5 MG, QD
     Route: 048
     Dates: start: 20191128
  3. DABRAFENIB [Suspect]
     Active Substance: DABRAFENIB
     Indication: MALIGNANT MELANOMA
     Dosage: 150 MG, BID
     Route: 048
     Dates: start: 20191023, end: 20191118
  4. IBUPROFEN. [Concomitant]
     Active Substance: IBUPROFEN
     Dosage: 600 MG
     Route: 065
     Dates: start: 20191119
  5. TRAMETINIB [Suspect]
     Active Substance: TRAMETINIB
     Indication: MALIGNANT MELANOMA
     Dosage: 2 MG, QD
     Route: 048
     Dates: start: 20191023, end: 20191118
  6. DABRAFENIB [Suspect]
     Active Substance: DABRAFENIB
     Dosage: 100 MG, BID
     Route: 048
     Dates: start: 20191128
  7. IBUPROFEN. [Concomitant]
     Active Substance: IBUPROFEN
     Indication: PYREXIA
     Dosage: 600 MG
     Route: 065
     Dates: start: 20191030, end: 20191101
  8. MEPREDNISONE [Concomitant]
     Active Substance: MEPREDNISONE
     Indication: PYREXIA
     Dosage: UNK
     Route: 065
     Dates: start: 20191031, end: 20191102
  9. MEPREDNISONE [Concomitant]
     Active Substance: MEPREDNISONE
     Dosage: 10 MG
     Route: 065
     Dates: start: 20191120, end: 20191121

REACTIONS (3)
  - Pyrexia [Recovered/Resolved with Sequelae]
  - Febrile neutropenia [Not Recovered/Not Resolved]
  - Influenza [Recovered/Resolved with Sequelae]

NARRATIVE: CASE EVENT DATE: 20191121
